FAERS Safety Report 18974280 (Version 1)
Quarter: 2021Q1

REPORT INFORMATION
  Report Type: Spontaneous
  Country: US (occurrence: US)
  Receive Date: 20210305
  Receipt Date: 20210305
  Transmission Date: 20210420
  Serious: Yes (Death)
  Sender: FDA-Public Use
  Company Number: US-OTSUKA-2021_007047

PATIENT
  Age: 86 Year
  Sex: Female

DRUGS (1)
  1. REXULTI [Suspect]
     Active Substance: BREXPIPRAZOLE
     Indication: SCHIZOPHRENIA
     Dosage: 1 MG
     Route: 065
     Dates: start: 20180623

REACTIONS (1)
  - Death [Fatal]

NARRATIVE: CASE EVENT DATE: 20210301
